FAERS Safety Report 7716658-5 (Version None)
Quarter: 2011Q3

REPORT INFORMATION
  Report Type: 
  Country: None (occurrence: None)
  Receive Date: 20110829
  Receipt Date: 20110818
  Transmission Date: 20111222
  Serious: Yes (Hospitalization)
  Sender: FDA-Public Use
  Company Number: FR-ASTRAZENECA-2011SE49730

PATIENT
  Sex: Male

DRUGS (13)
  1. COSOPT [Suspect]
     Route: 047
     Dates: start: 20101101, end: 20110121
  2. TOBRADEX [Suspect]
     Route: 047
     Dates: start: 20101224
  3. ROCEPHIN [Concomitant]
     Route: 042
     Dates: start: 20101217, end: 20101220
  4. TRUSOPT [Suspect]
     Route: 047
     Dates: start: 20101101, end: 20110121
  5. ACETAMINOPHEN [Concomitant]
     Route: 048
  6. DIPRIVAN [Suspect]
     Indication: ANAESTHESIA
     Route: 042
     Dates: start: 20101123, end: 20101123
  7. SUFENTA PRESERVATIVE FREE [Suspect]
     Indication: ANAESTHESIA
     Route: 042
     Dates: start: 20101123, end: 20101123
  8. GENTAMICIN [Concomitant]
     Route: 042
     Dates: start: 20101217, end: 20101220
  9. KAYEXALATE [Concomitant]
     Route: 048
     Dates: end: 20101224
  10. DIAMOX SRC [Suspect]
     Route: 048
     Dates: start: 20101123
  11. TOBRADEX [Suspect]
     Route: 047
     Dates: start: 20101126, end: 20101220
  12. TRAVATAN [Concomitant]
     Route: 047
     Dates: start: 20101101
  13. DIAMOX SRC [Suspect]
     Route: 048
     Dates: start: 20101220, end: 20101223

REACTIONS (2)
  - DRUG RASH WITH EOSINOPHILIA AND SYSTEMIC SYMPTOMS [None]
  - CONJUNCTIVITIS [None]
